FAERS Safety Report 10362159 (Version 1)
Quarter: 2014Q1

REPORT INFORMATION
  Report Type: Spontaneous
  Country: US (occurrence: None)
  Receive Date: 20140306
  Receipt Date: 20140306
  Transmission Date: 20141002
  Serious: Yes (Hospitalization)
  Sender: FDA-Public Use
  Company Number: 163-21880-13021042

PATIENT
  Age: 46 Year
  Sex: Male
  Weight: 81.65 kg

DRUGS (10)
  1. REVLIMID (LENALIDOMIDE) (25 MILLIGRAM, CAPSULES) [Suspect]
     Indication: PLASMA CELL MYELOMA
     Route: 048
     Dates: start: 20111110
  2. ALLOPURINOL (UNKNOWN) [Concomitant]
  3. CYCLOPHOSPHAMIDE (UNKNOWN) [Concomitant]
  4. DEXAMETHASONE (UNKNOWN) [Concomitant]
  5. GABAPENTIN (UNKNOWN) [Concomitant]
  6. METHADONE INTENSOL (METHADONE HYDROCHLORIDE) (UNKNOWN) [Concomitant]
  7. OXYCODONE HCL (OXYCODONE HYDROCHLORIDE) (UNKNOWN) [Concomitant]
  8. PROTONIX (TABLETS) [Concomitant]
  9. VALACYCLOVIR (VALCICLOVIR HYDROCHLORIDE) (UNKNOWN) [Concomitant]
  10. ZOFRAN (ONDANSETRON HYDROCHLORIDE) (TABLETS) [Concomitant]

REACTIONS (3)
  - White blood cell count decreased [None]
  - Influenza [None]
  - Pneumonia viral [None]
